FAERS Safety Report 11955958 (Version 1)
Quarter: 2016Q1

REPORT INFORMATION
  Report Type: Spontaneous
  Country: US (occurrence: US)
  Receive Date: 20160126
  Receipt Date: 20160126
  Transmission Date: 20160526
  Serious: No
  Sender: FDA-Public Use
  Company Number: US-ENDO PHARMACEUTICALS INC.-PHEN20150001

PATIENT
  Age: 43 Year
  Sex: Female

DRUGS (1)
  1. PHENTERMINE HCL TABLETS [Suspect]
     Active Substance: PHENTERMINE HYDROCHLORIDE
     Indication: WEIGHT DECREASED
     Route: 048
     Dates: start: 20150107

REACTIONS (2)
  - Decreased appetite [Unknown]
  - Dry mouth [Unknown]
